FAERS Safety Report 16727593 (Version 1)
Quarter: 2019Q3

REPORT INFORMATION
  Report Type: Spontaneous
  Country: FR (occurrence: FR)
  Receive Date: 20190822
  Receipt Date: 20190822
  Transmission Date: 20191005
  Serious: Yes (Other)
  Sender: FDA-Public Use
  Company Number: FR-SUN PHARMACEUTICAL INDUSTRIES LTD-2019RR-218256

PATIENT
  Sex: Female
  Weight: 76 kg

DRUGS (2)
  1. EZETROL 10 MG, COMPRIME [Suspect]
     Active Substance: EZETIMIBE
     Indication: ARTERITIS
     Dosage: 1 DOSAGE FORM, DAILY
     Route: 048
     Dates: start: 201704, end: 20170523
  2. ATORVASTATINE [Suspect]
     Active Substance: ATORVASTATIN
     Indication: ARTERITIS
     Dosage: 1 DOSAGE FORM, DAILY
     Route: 048
     Dates: start: 200704, end: 201704

REACTIONS (4)
  - Weight increased [Recovering/Resolving]
  - Malaise [Recovered/Resolved]
  - Pain in extremity [Recovered/Resolved]
  - Blood creatine phosphokinase increased [Recovering/Resolving]

NARRATIVE: CASE EVENT DATE: 201112
